FAERS Safety Report 8539880-7 (Version None)
Quarter: 2012Q2

REPORT INFORMATION
  Report Type: 
  Country: None (occurrence: None)
  Receive Date: 20120412
  Receipt Date: 20090107
  Transmission Date: 20120825
  Serious: Yes (Other)
  Sender: FDA-Public Use
  Company Number: PHEH2004US00632

PATIENT
  Age: 66 Year
  Sex: Female

DRUGS (19)
  1. ZAROXOLYN [Concomitant]
  2. PREDNISONE (PREDNISONE) ONGOING [Concomitant]
  3. CALCIUM (CALCIUM) ONGOING [Concomitant]
  4. SINGULAIR ^MERCK^ (MONTELUKAST SODIUM) ONGOING [Concomitant]
  5. SULFATRIM DS (SULFAMETHOXAZOLE, TRIMETHOPRIM) ONGOING [Concomitant]
  6. TAXOL (PACLITAXEL) 07/25/2000 TO 10/12/2000 [Concomitant]
  7. ADVAIR HFA [Concomitant]
  8. FUROSEMIDE (FUROSEMIDE) ONGOING [Concomitant]
  9. PRILOSEC (OMEPRAZOLE) 10/22/2001 TO ONGOING [Concomitant]
  10. VITAMIN B6 (PYRIDOXINE HYDROCHLORIDE) ONGOING [Concomitant]
  11. ALBUTEROL (SALBUTAMOL) ONGOING [Concomitant]
  12. CYTOXAN (CYCLOPHOSPHAMIDE) 05/04/2000 TO 07/06/2000 [Concomitant]
  13. TAMOXIFEN (TAMOXIFEN) --/--/2001 TO ONGOING [Concomitant]
  14. ZOLOFT (SERTRALINE HYDROCHLORIDE) ONGOING [Concomitant]
  15. AREDIA [Suspect]
     Indication: BREAST CANCER METASTATIC
     Dosage: 90 MG, QMO, INTRAVENOUS
     Route: 042
     Dates: start: 20000601, end: 20010101
  16. ACETYLSALICYLIC ACID (ACETYLSALICYLIC ACID) ONGOING [Concomitant]
  17. INSULIN (INSULIN) --/--/1995 TO ONGOING [Concomitant]
  18. DOXORUBICIN (DOXORUBICIN) 05/04/2000 TO 07/06/2000 [Concomitant]
  19. LEVOXYL [Concomitant]

REACTIONS (6)
  - OSTEONECROSIS [None]
  - SWELLING [None]
  - WOUND DRAINAGE [None]
  - GINGIVAL ERYTHEMA [None]
  - BONE DISORDER [None]
  - PAIN [None]
